FAERS Safety Report 5593622-6 (Version None)
Quarter: 2007Q4

REPORT INFORMATION
  Report Type: 
  Country: None (occurrence: None)
  Receive Date: 20071218
  Receipt Date: 20061109
  Transmission Date: 20080405
  Serious: Yes (Hospitalization, Other)
  Sender: FDA-Public Use
  Company Number: 2006142251

PATIENT
  Age: 69 Year
  Sex: Male
  Weight: 85.7 kg

DRUGS (2)
  1. BEXTRA [Suspect]
     Indication: MUSCULOSKELETAL PAIN
     Dosage: 20MG OR 40MG (20 MG,ONE OR TWO TIMES A DAY)
     Dates: start: 20020801
  2. BEXTRA [Suspect]
     Indication: PAIN IN EXTREMITY
     Dosage: 20MG OR 40MG (20 MG,ONE OR TWO TIMES A DAY)
     Dates: start: 20020801

REACTIONS (1)
  - MYOCARDIAL INFARCTION [None]
